FAERS Safety Report 10943808 (Version 1)
Quarter: 2015Q1

REPORT INFORMATION
  Report Type: Spontaneous
  Country: US (occurrence: None)
  Receive Date: 20150212
  Receipt Date: 20150212
  Transmission Date: 20150721
  Serious: No
  Sender: FDA-Public Use
  Company Number: TPA2011A04998

PATIENT
  Age: 52 Year
  Sex: Male
  Weight: 90.72 kg

DRUGS (5)
  1. ATENOLOL. [Concomitant]
     Active Substance: ATENOLOL
  2. POTASSIUM [Concomitant]
     Active Substance: POTASSIUM
  3. ANDROGEL [Concomitant]
     Active Substance: TESTOSTERONE
  4. CYMBALTA [Concomitant]
     Active Substance: DULOXETINE HYDROCHLORIDE
  5. ULORIC [Suspect]
     Active Substance: FEBUXOSTAT

REACTIONS (1)
  - Gout [None]

NARRATIVE: CASE EVENT DATE: 20110814
